FAERS Safety Report 8890228 (Version 2)
Quarter: 2014Q2

REPORT INFORMATION
  Report Type: Spontaneous
  Country: US (occurrence: US)
  Receive Date: 20121107
  Receipt Date: 20140411
  Transmission Date: 20141212
  Serious: Yes (Hospitalization)
  Sender: FDA-Public Use
  Company Number: US-BAYER-2012-115069

PATIENT
  Age: 45 Year
  Sex: Female
  Weight: 109.71 kg

DRUGS (6)
  1. YASMIN [Suspect]
     Indication: ACNE
  2. PROVERA [Concomitant]
  3. PROAIR HFA [Concomitant]
     Indication: WHEEZING
     Dosage: 90 MCG 2 PUFFS EVERY 6 HOURS
     Dates: start: 20081028
  4. QVAR [Concomitant]
     Dosage: UNK UNK, BID
  5. METRONIDAZOLE [Concomitant]
     Dosage: 500 MG, TAKE 1 2 TIMES DAILY
     Route: 048
  6. LEVOTHROID [Concomitant]
     Dosage: 150 MCG TAKE 1 DAILY
     Route: 048
     Dates: start: 20060730, end: 20081229

REACTIONS (5)
  - Deep vein thrombosis [None]
  - Pulmonary embolism [None]
  - Injury [None]
  - Pain [None]
  - Pain [None]
